FAERS Safety Report 24627904 (Version 1)
Quarter: 2024Q4

REPORT INFORMATION
  Report Type: Spontaneous
  Country: US (occurrence: US)
  Receive Date: 20241117
  Receipt Date: 20241117
  Transmission Date: 20250115
  Serious: Yes (Other)
  Sender: DR REDDYS
  Company Number: None

PATIENT
  Sex: Male

DRUGS (18)
  1. CYCLOPHOSPHAMIDE [Suspect]
     Active Substance: CYCLOPHOSPHAMIDE
     Indication: B-cell type acute leukaemia
     Dosage: REMISSION INDUCTION THERAPY
     Route: 029
  2. CYCLOPHOSPHAMIDE [Suspect]
     Active Substance: CYCLOPHOSPHAMIDE
     Indication: Neuroblastoma
     Dosage: INTERMEDIATE-RISK NB TREATMENT WAS INITIATED AS PER A3961
     Route: 029
  3. DOXORUBICIN [Suspect]
     Active Substance: DOXORUBICIN
     Indication: Neuroblastoma
     Dosage: INTERMEDIATE-RISK NB TREATMENT WAS INITIATED AS PER A3961/EIGHT TOTAL CYCLES OF INTERMEDIATE RISK NB
  4. MERCAPTOPURINE [Suspect]
     Active Substance: MERCAPTOPURINE
     Indication: B-cell type acute leukaemia
     Dosage: CONSOLIDATION
  5. MERCAPTOPURINE [Suspect]
     Active Substance: MERCAPTOPURINE
     Dosage: REMISSION INDUCTION THERAPY
  6. CARBOPLATIN [Suspect]
     Active Substance: CARBOPLATIN
     Indication: Neuroblastoma
     Dosage: INTERMEDIATE-RISK NB TREATMENT WAS INITIATED AS PER A3961/EIGHT TOTAL CYCLES OF INTERMEDIATE RISK NB
  7. METHOTREXATE [Suspect]
     Active Substance: METHOTREXATE
     Indication: B-cell type acute leukaemia
     Route: 029
  8. METHOTREXATE [Suspect]
     Active Substance: METHOTREXATE
     Dosage: HIGH DOSE; CONSOLIDATION
     Route: 029
  9. HYDROCORTISONE [Suspect]
     Active Substance: HYDROCORTISONE
     Indication: B-cell type acute leukaemia
     Route: 029
  10. CYTARABINE [Suspect]
     Active Substance: CYTARABINE
     Indication: B-cell type acute leukaemia
     Route: 029
  11. CYTARABINE [Suspect]
     Active Substance: CYTARABINE
     Dosage: REMISSION INDUCTION THERAPY
     Route: 029
  12. PREDNISONE [Suspect]
     Active Substance: PREDNISONE
     Indication: B-cell type acute leukaemia
     Dosage: REMISSION INDUCTION THERAPY
  13. VINCRISTINE [Suspect]
     Active Substance: VINCRISTINE
     Indication: B-cell type acute leukaemia
     Dosage: REMISSION INDUCTION THERAPY
  14. VINCRISTINE [Suspect]
     Active Substance: VINCRISTINE
     Dosage: INTERIM THERAPY
  15. DAUNORUBICIN [Suspect]
     Active Substance: DAUNORUBICIN
     Indication: B-cell type acute leukaemia
     Dosage: REMISSION INDUCTION THERAPY
  16. PEG/L-ASPARAGINASE [Suspect]
     Active Substance: PEGASPARGASE
     Indication: B-cell type acute leukaemia
     Dosage: REMISSION INDUCTION THERAPY
  17. ETOPOSIDE [Suspect]
     Active Substance: ETOPOSIDE
     Indication: Neuroblastoma
     Dosage: INTERMEDIATE-RISK NB TREATMENT WAS INITIATED AS PER A3961/EIGHT TOTAL CYCLES OF INTERMEDIATE RISK NB
  18. DEXAMETHASONE [Suspect]
     Active Substance: DEXAMETHASONE
     Indication: B-cell type acute leukaemia
     Route: 048

REACTIONS (1)
  - Myelosuppression [Unknown]
